FAERS Safety Report 8614240-9 (Version None)
Quarter: 2012Q3

REPORT INFORMATION
  Report Type: 
  Country: None (occurrence: None)
  Receive Date: 20120823
  Receipt Date: 20120813
  Transmission Date: 20120928
  Serious: Yes (Hospitalization, Disabling)
  Sender: FDA-Public Use
  Company Number: US-009507513-1108USA00185

PATIENT

DRUGS (4)
  1. BONIVA [Suspect]
     Indication: OSTEOPOROSIS
     Dosage: 150 MG, UNK
     Route: 048
     Dates: start: 20090101, end: 20091215
  2. FOSAMAX [Suspect]
     Dosage: 70 MG, QD
     Route: 048
     Dates: start: 20080919, end: 20081223
  3. FOSAMAX [Suspect]
     Indication: OSTEOPOROSIS
     Dosage: 10 MG, QD
     Route: 048
     Dates: start: 19950101
  4. MK-9278 [Concomitant]

REACTIONS (36)
  - DYSPEPSIA [None]
  - MIGRAINE [None]
  - ROAD TRAFFIC ACCIDENT [None]
  - FATIGUE [None]
  - HERPES ZOSTER [None]
  - INTERVERTEBRAL DISC DEGENERATION [None]
  - OSTEOPENIA [None]
  - DEPRESSION [None]
  - HYPERLIPIDAEMIA [None]
  - SCIATICA [None]
  - SPLEEN DISORDER [None]
  - JOINT DISLOCATION [None]
  - INTESTINAL OBSTRUCTION [None]
  - PHARYNGITIS [None]
  - ACUTE STRESS DISORDER [None]
  - ACUTE SINUSITIS [None]
  - FRACTURE NONUNION [None]
  - MUSCULOSKELETAL CHEST PAIN [None]
  - MUSCULOSKELETAL PAIN [None]
  - PATHOLOGICAL FRACTURE [None]
  - STRESS FRACTURE [None]
  - GASTRIC DISORDER [None]
  - SPONDYLOLISTHESIS [None]
  - DEVICE FAILURE [None]
  - ADVERSE EVENT [None]
  - STRESS [None]
  - CARPAL TUNNEL SYNDROME [None]
  - OSTEOPOROSIS [None]
  - SEBORRHOEIC KERATOSIS [None]
  - SPINAL FRACTURE [None]
  - LOW TURNOVER OSTEOPATHY [None]
  - HIATUS HERNIA [None]
  - CHRONIC SINUSITIS [None]
  - FRACTURE DELAYED UNION [None]
  - OSTEOARTHRITIS [None]
  - CHEST PAIN [None]
